FAERS Safety Report 25096665 (Version 3)
Quarter: 2025Q3

REPORT INFORMATION
  Report Type: Report from Study
  Country: US (occurrence: US)
  Receive Date: 20250319
  Receipt Date: 20250811
  Transmission Date: 20251021
  Serious: No
  Sender: SANDOZ
  Company Number: US-SANDOZ-SDZ2024US089356

PATIENT
  Age: 16 Year
  Sex: Male

DRUGS (8)
  1. OMNITROPE [Suspect]
     Active Substance: SOMATROPIN
     Dosage: 10 MG, QD
     Route: 058
  2. OMNITROPE [Suspect]
     Active Substance: SOMATROPIN
     Dosage: 10 MG, QD
     Route: 058
  3. OMNITROPE [Suspect]
     Active Substance: SOMATROPIN
     Dosage: 2.5 MG, QD
     Route: 058
     Dates: start: 20241024
  4. OMNITROPE [Suspect]
     Active Substance: SOMATROPIN
     Dosage: 2.5 MG, QD
     Route: 058
     Dates: start: 20241024
  5. OMNITROPE [Suspect]
     Active Substance: SOMATROPIN
     Indication: Short stature
     Dosage: 2.4 MG, QD
     Route: 065
  6. OMNITROPE [Suspect]
     Active Substance: SOMATROPIN
     Indication: Short stature
     Dosage: 2.4 MG, QD
     Route: 065
  7. OMNITROPE [Suspect]
     Active Substance: SOMATROPIN
     Dosage: 2.5 MG, QD (FORMULATION: SUSPENSION)
     Route: 058
     Dates: start: 20250314, end: 20250314
  8. OMNITROPE [Suspect]
     Active Substance: SOMATROPIN
     Dosage: 2.5 MG, QD (FORMULATION: SUSPENSION)
     Route: 058
     Dates: start: 20250314, end: 20250314

REACTIONS (4)
  - Product dose omission issue [Unknown]
  - Circumstance or information capable of leading to device use error [Unknown]
  - Device breakage [Unknown]
  - Product availability issue [Unknown]

NARRATIVE: CASE EVENT DATE: 20250314
